FAERS Safety Report 5551779-7 (Version None)
Quarter: 2007Q4

REPORT INFORMATION
  Report Type: 
  Country: None (occurrence: None)
  Receive Date: 20071212
  Receipt Date: 20071206
  Transmission Date: 20080405
  Serious: Yes (Hospitalization)
  Sender: FDA-Public Use
  Company Number: JP-BOEHRINGER INGELHEIM PHARMACEUTICALS, INC.-2007-BP-25938YA

PATIENT
  Age: 70 Year
  Sex: Male

DRUGS (3)
  1. TAMSULOSIN HCL [Suspect]
     Indication: BENIGN PROSTATIC HYPERPLASIA
     Route: 048
     Dates: start: 20061101, end: 20071030
  2. TAMSULOSIN HCL [Suspect]
     Route: 048
     Dates: start: 20071113, end: 20071113
  3. REPORTED IN NARRATIVE [Concomitant]

REACTIONS (1)
  - DERMATITIS EXFOLIATIVE [None]
